FAERS Safety Report 15420199 (Version 1)
Quarter: 2018Q3

REPORT INFORMATION
  Report Type: Spontaneous
  Country: US (occurrence: US)
  Receive Date: 20180924
  Receipt Date: 20180924
  Transmission Date: 20181010
  Serious: Yes (Other)
  Sender: FDA-Public Use
  Company Number: US-SA-2018SA264112

PATIENT
  Age: 34 Year
  Sex: Male

DRUGS (2)
  1. TECFIDERA [Suspect]
     Active Substance: DIMETHYL FUMARATE
     Dosage: UNK
     Dates: start: 20180914
  2. AUBAGIO [Suspect]
     Active Substance: TERIFLUNOMIDE
     Indication: MULTIPLE SCLEROSIS
     Dosage: 14 MG, QD
     Route: 048
     Dates: start: 20180302

REACTIONS (4)
  - Multiple sclerosis [Unknown]
  - Sunburn [Unknown]
  - Depression [Unknown]
  - Flushing [Unknown]

NARRATIVE: CASE EVENT DATE: 20180914
